FAERS Safety Report 6544814-0 (Version None)
Quarter: 2010Q1

REPORT INFORMATION
  Report Type: 
  Country: None (occurrence: None)
  Receive Date: 20100121
  Receipt Date: 20091228
  Transmission Date: 20100710
  Serious: Yes (Life-Threatening, Hospitalization)
  Sender: FDA-Public Use
  Company Number: CA-SANOFI-AVENTIS-F01200900481

PATIENT
  Age: 67 Year
  Sex: Male
  Weight: 79.5 kg

DRUGS (9)
  1. LEUPRORELIN ACETATE [Suspect]
     Indication: PROSTATE CANCER
     Dosage: UNIT DOSE: 22.5 MG
     Route: 058
     Dates: start: 20081016, end: 20090402
  2. TAXOTERE [Suspect]
     Dosage: UNIT DOSE: 119.4 MG
     Route: 042
     Dates: start: 20081016, end: 20090402
  3. CASODEX [Suspect]
     Dosage: UNIT DOSE: 50 MG
     Route: 048
     Dates: start: 20081016, end: 20081115
  4. NORVASC [Concomitant]
     Dosage: UNIT DOSE: 5 MG
     Route: 048
  5. MAVIK [Concomitant]
     Dosage: UNIT DOSE: 1 MG
     Route: 048
  6. IMODIUM [Concomitant]
     Dosage: UNIT DOSE: 2 MG
     Route: 048
  7. BENZALKONIUM CHLORIDE/DEXAMETHASONE/PHENYLMERCURIC NITRATE [Concomitant]
     Dosage: UNIT DOSE: 3.5 MG
     Route: 047
  8. COUMADIN [Concomitant]
     Dosage: UNIT DOSE: 5 MG
     Route: 048
  9. ANDROCUR [Concomitant]
     Dosage: UNIT DOSE: 50 MG
     Route: 048

REACTIONS (1)
  - PULMONARY EMBOLISM [None]
